FAERS Safety Report 8776475 (Version 1)
Quarter: 2012Q4

REPORT INFORMATION
  Report Type: 
  Country: AU (occurrence: AU)
  Receive Date: 20120910
  Receipt Date: 20120910
  Transmission Date: 20130627
  Serious: Yes (Other)
  Sender: FDA-Public Use
  Company Number: PHHY2012AU077291

PATIENT
  Age: 78 Year
  Sex: Male

DRUGS (2)
  1. ACLASTA [Suspect]
     Indication: OSTEITIS DEFORMANS
     Dosage: UNK UKN, UNK
     Route: 042
     Dates: start: 201204
  2. AREDIA [Suspect]
     Dosage: Three monthly infusions
     Dates: start: 1991

REACTIONS (1)
  - Blood alkaline phosphatase increased [Unknown]
